FAERS Safety Report 12762407 (Version 1)
Quarter: 2016Q3

REPORT INFORMATION
  Report Type: Spontaneous
  Country: US (occurrence: US)
  Receive Date: 20160920
  Receipt Date: 20160920
  Transmission Date: 20161109
  Serious: No
  Sender: FDA-Public Use
  Company Number: US-GLAXOSMITHKLINE-US2016135068

PATIENT
  Sex: Female

DRUGS (1)
  1. ALLI [Suspect]
     Active Substance: ORLISTAT
     Indication: PRODUCT USED FOR UNKNOWN INDICATION
     Dosage: UNK

REACTIONS (5)
  - Swelling face [Recovered/Resolved]
  - Gallbladder disorder [Recovered/Resolved]
  - Drug hypersensitivity [Recovered/Resolved]
  - Rash generalised [Recovered/Resolved]
  - Rectal discharge [Recovered/Resolved]
